FAERS Safety Report 20552756 (Version 1)
Quarter: 2022Q1

REPORT INFORMATION
  Report Type: Spontaneous
  Country: GB (occurrence: GB)
  Receive Date: 20220304
  Receipt Date: 20220304
  Transmission Date: 20220423
  Serious: Yes (Hospitalization)
  Sender: FDA-Public Use
  Company Number: GB-MYLANLABS-2022M1017303

PATIENT
  Age: 39 Year
  Sex: Female

DRUGS (8)
  1. MYCOPHENOLATE MOFETIL [Suspect]
     Active Substance: MYCOPHENOLATE MOFETIL
     Indication: Myopic chorioretinal degeneration
     Dosage: 1.5 MILLIGRAM, BID
     Route: 048
  2. MYCOPHENOLATE MOFETIL [Suspect]
     Active Substance: MYCOPHENOLATE MOFETIL
     Indication: Choroidal neovascularisation
  3. OZURDEX [Suspect]
     Active Substance: DEXAMETHASONE
     Indication: Myopic chorioretinal degeneration
     Dosage: UNK (ROUTE-BILATERAL INTRAVITREAL)
  4. OZURDEX [Suspect]
     Active Substance: DEXAMETHASONE
     Indication: Choroidal neovascularisation
  5. PREDNISOLONE [Suspect]
     Active Substance: PREDNISOLONE
     Indication: Myopic chorioretinal degeneration
     Dosage: 10 MILLIGRAM, QD
     Route: 048
  6. PREDNISOLONE [Suspect]
     Active Substance: PREDNISOLONE
     Indication: Choroidal neovascularisation
  7. ADALIMUMAB [Suspect]
     Active Substance: ADALIMUMAB
     Indication: Myopic chorioretinal degeneration
     Dosage: 40 MILLIGRAM, BIWEEKLY
     Route: 058
  8. ADALIMUMAB [Suspect]
     Active Substance: ADALIMUMAB
     Indication: Choroidal neovascularisation

REACTIONS (2)
  - Drug ineffective for unapproved indication [Unknown]
  - Off label use [Unknown]
